FAERS Safety Report 16886451 (Version 4)
Quarter: 2020Q2

REPORT INFORMATION
  Report Type: Spontaneous
  Country: FR (occurrence: FR)
  Receive Date: 20191004
  Receipt Date: 20200430
  Transmission Date: 20200713
  Serious: Yes (Other)
  Sender: FDA-Public Use
  Company Number: FR-BAUSCH-BL-2019-015207

PATIENT
  Age: 74 Year
  Sex: Female

DRUGS (11)
  1. UVEDOSE [Concomitant]
     Active Substance: CHOLECALCIFEROL
     Indication: PRODUCT USED FOR UNKNOWN INDICATION
     Dosage: 1 VIAL PER MONTH
  2. YELLOX 0.9 MG/ML EYE DROPS, SOLUTION [Suspect]
     Active Substance: BROMFENAC SODIUM
     Indication: MACULAR OEDEMA
     Dosage: STARTED ON 21/MAY/2019 NOON 0.9 MG/ML EYE DROPS IN LEFT EYE
     Route: 047
     Dates: start: 20190521, end: 20190902
  3. DIAMOX SEQUELS [Suspect]
     Active Substance: ACETAZOLAMIDE
     Indication: PRODUCT USED FOR UNKNOWN INDICATION
     Dosage: HALF A TABLET 3 TIMES PER DAY FOR 1 MONTH
     Route: 065
     Dates: start: 20190521, end: 201906
  4. DIAMOX SEQUELS [Suspect]
     Active Substance: ACETAZOLAMIDE
     Dosage: HALF A TABLET PER DAY IN THE EVENING
     Route: 065
     Dates: start: 2019, end: 2019
  5. DEXAFREE [Concomitant]
     Active Substance: DEXAMETHASONE SODIUM PHOSPHATE
     Indication: PRODUCT USED FOR UNKNOWN INDICATION
     Dosage: IN LEFT EYE, 5 MINUTES BEFORE YELLOX, FOR 14 DAYS ONLY
     Route: 047
     Dates: start: 20190521
  6. TIMOFEROL [Concomitant]
     Active Substance: ASCORBIC ACID\FERROUS SULFATE
     Indication: BLOOD IRON DECREASED
     Dosage: 1 TABLET (MIDDAY)
  7. CACIT VITAMINE D3 [Concomitant]
     Active Substance: CALCIUM CARBONATE\CHOLECALCIFEROL
     Indication: OSTEOPOROSIS
     Dosage: EFFERVESCENT FORMULATION
  8. SYSTANE (HYPROMELLOSE 2910 (4000 MPA.S)) [Concomitant]
     Active Substance: HYPROMELLOSE 2910 (4000 MPA.S)
     Indication: PRODUCT USED FOR UNKNOWN INDICATION
     Dosage: SINCE THE CATARACT SURGERY LUBRICANG EYE DROPS IN BOTH EYES
     Route: 047
     Dates: start: 2018
  9. DIAMOX SEQUELS [Suspect]
     Active Substance: ACETAZOLAMIDE
     Dosage: HALF A TABLET TWICE A DAY (MORNING AND EVENING) FOR 1 MONTH
     Route: 065
     Dates: start: 20190618, end: 2019
  10. YELLOX 0.9 MG/ML EYE DROPS, SOLUTION [Suspect]
     Active Substance: BROMFENAC SODIUM
     Indication: OFF LABEL USE
     Dosage: IN LEFT EYE
     Route: 047
     Dates: start: 201909, end: 2019
  11. YELLOX 0.9 MG/ML EYE DROPS, SOLUTION [Suspect]
     Active Substance: BROMFENAC SODIUM
     Dosage: RESTARTED WITH NEW PRESCRIPTION, 1 DROP MORNING AND EVENING
     Route: 047
     Dates: start: 20200122, end: 20200406

REACTIONS (8)
  - Macular oedema [Unknown]
  - Disease recurrence [Unknown]
  - Drug effective for unapproved indication [Unknown]
  - Fatigue [Recovered/Resolved]
  - Pruritus [Recovered/Resolved]
  - Product availability issue [Recovered/Resolved]
  - Off label use [Unknown]
  - Therapy interrupted [Recovered/Resolved]

NARRATIVE: CASE EVENT DATE: 2019
